FAERS Safety Report 13968244 (Version 1)
Quarter: 2017Q3

REPORT INFORMATION
  Report Type: Spontaneous
  Country: US (occurrence: US)
  Receive Date: 20170914
  Receipt Date: 20170914
  Transmission Date: 20171128
  Serious: No
  Sender: FDA-Public Use
  Company Number: US-PERRIGO-16US021692

PATIENT
  Age: 84 Year
  Sex: Female
  Weight: 55.33 kg

DRUGS (11)
  1. LUMIGAN [Concomitant]
     Active Substance: BIMATOPROST
     Indication: MACULAR DEGENERATION
     Dosage: UNK, QD AT BEDTIME
     Route: 065
  2. CLARITIN [Concomitant]
     Active Substance: LORATADINE
     Indication: PERENNIAL ALLERGY
     Dosage: UNK
     Route: 065
  3. MINOXIDIL. [Suspect]
     Active Substance: MINOXIDIL
     Indication: ALOPECIA
     Dosage: 1 ML, SINGLE
     Route: 061
     Dates: start: 20161104, end: 20161104
  4. VITAMINS                           /90003601/ [Concomitant]
     Active Substance: VITAMINS
     Indication: SUPPLEMENTATION THERAPY
     Dosage: UNK
     Route: 065
  5. LEVOTHYROXINE. [Concomitant]
     Active Substance: LEVOTHYROXINE
     Indication: HYPOTHYROIDISM
     Dosage: UNK
     Route: 065
  6. HYDROCHLOROTHIAZIDE. [Concomitant]
     Active Substance: HYDROCHLOROTHIAZIDE
     Indication: HYPERTENSION
     Dosage: UNK
     Route: 065
  7. HYDRALAZINE [Concomitant]
     Active Substance: HYDRALAZINE HYDROCHLORIDE
     Indication: ATRIAL FIBRILLATION
     Dosage: 50 MG, UNKNOWN
     Route: 065
  8. AZOPT [Concomitant]
     Active Substance: BRINZOLAMIDE
     Indication: GLAUCOMA
     Dosage: UNK, TID
     Route: 065
  9. XARELTO [Concomitant]
     Active Substance: RIVAROXABAN
     Indication: ANTICOAGULANT THERAPY
     Dosage: UNK
     Route: 065
  10. NEURONTIN [Concomitant]
     Active Substance: GABAPENTIN
     Indication: NEUROPATHY PERIPHERAL
     Dosage: 100 MG QD, 400 MG QD AT BEDTIME
     Route: 065
  11. LOSARTAN. [Concomitant]
     Active Substance: LOSARTAN
     Indication: ATRIAL FIBRILLATION
     Dosage: 100 MG, UNKNOWN
     Route: 065

REACTIONS (1)
  - Application site papules [Recovered/Resolved]

NARRATIVE: CASE EVENT DATE: 20161104
